FAERS Safety Report 20153043 (Version 2)
Quarter: 2021Q4

REPORT INFORMATION
  Report Type: Report from Study
  Country: FR (occurrence: FR)
  Receive Date: 20211206
  Receipt Date: 20211218
  Transmission Date: 20220303
  Serious: Yes (Hospitalization, Other)
  Sender: FDA-Public Use
  Company Number: FR-TAKEDA-2021TUS075940

PATIENT
  Age: 19 Year
  Sex: Female

DRUGS (12)
  1. TEDUGLUTIDE [Suspect]
     Active Substance: TEDUGLUTIDE
     Indication: Short-bowel syndrome
     Dosage: 2.6 MILLIGRAM
     Route: 065
     Dates: start: 20180913, end: 20201012
  2. TEDUGLUTIDE [Suspect]
     Active Substance: TEDUGLUTIDE
     Indication: Short-bowel syndrome
     Dosage: 2.6 MILLIGRAM
     Route: 065
     Dates: start: 20180913, end: 20201012
  3. TEDUGLUTIDE [Suspect]
     Active Substance: TEDUGLUTIDE
     Indication: Short-bowel syndrome
     Dosage: 2.6 MILLIGRAM
     Route: 065
     Dates: start: 20180913, end: 20201012
  4. TEDUGLUTIDE [Suspect]
     Active Substance: TEDUGLUTIDE
     Indication: Short-bowel syndrome
     Dosage: 2.6 MILLIGRAM
     Route: 065
     Dates: start: 20180913, end: 20201012
  5. TEDUGLUTIDE [Suspect]
     Active Substance: TEDUGLUTIDE
     Dosage: 2.8 MILLIGRAM
     Route: 065
     Dates: start: 20201013
  6. TEDUGLUTIDE [Suspect]
     Active Substance: TEDUGLUTIDE
     Dosage: 2.8 MILLIGRAM
     Route: 065
     Dates: start: 20201013
  7. TEDUGLUTIDE [Suspect]
     Active Substance: TEDUGLUTIDE
     Dosage: 2.8 MILLIGRAM
     Route: 065
     Dates: start: 20201013
  8. TEDUGLUTIDE [Suspect]
     Active Substance: TEDUGLUTIDE
     Dosage: 2.8 MILLIGRAM
     Route: 065
     Dates: start: 20201013
  9. ZINC GLUCONATE [Concomitant]
     Active Substance: ZINC GLUCONATE
     Indication: Zinc deficiency
     Dosage: 15 MILLIGRAM, QD
     Route: 048
     Dates: start: 20211029
  10. Fenticonazole bailleul [Concomitant]
     Indication: Fungal infection
     Dosage: UNK UNK, BID
     Route: 050
     Dates: start: 202104, end: 202105
  11. VIMPAT [Concomitant]
     Active Substance: LACOSAMIDE
     Indication: Partial seizures
     Dosage: 100 MILLIGRAM, BID
     Route: 048
     Dates: start: 202102
  12. VITAMIN D [Concomitant]
     Active Substance: VITAMIN D NOS
     Indication: Vitamin D deficiency
     Dosage: 200000 INTERNATIONAL UNIT, QD
     Route: 048
     Dates: start: 20210411, end: 20210411

REACTIONS (5)
  - Intentional device misuse [Recovered/Resolved]
  - Vitamin D deficiency [Recovered/Resolved]
  - Hypovitaminosis [Recovered/Resolved]
  - Zinc deficiency [Recovered/Resolved]
  - Vitamin K deficiency [Recovered/Resolved]

NARRATIVE: CASE EVENT DATE: 20210411
